FAERS Safety Report 6955892-9 (Version None)
Quarter: 2010Q3

REPORT INFORMATION
  Report Type: 
  Country: None (occurrence: None)
  Receive Date: 20100830
  Receipt Date: 20100817
  Transmission Date: 20110219
  Serious: Yes (Hospitalization)
  Sender: FDA-Public Use
  Company Number: ES-ELI_LILLY_AND_COMPANY-ES201008005280

PATIENT
  Sex: Female
  Weight: 68 kg

DRUGS (6)
  1. FORTEO [Suspect]
     Indication: OSTEOPOROSIS
     Dosage: 20 UG, DAILY (1/D)
     Route: 058
     Dates: start: 20080609, end: 20100630
  2. SINTROM [Concomitant]
     Indication: PULMONARY EMBOLISM
     Dosage: UNK, AS NEEDED
     Route: 048
  3. HEPARIN [Concomitant]
     Indication: PULMONARY EMBOLISM
     Dosage: UNK, AS NEEDED
     Route: 058
  4. TRANXILIUM [Concomitant]
     Indication: ANXIETY
     Dosage: 15 MG, 2/D
     Route: 048
  5. LORMETAZEPAM [Concomitant]
     Indication: ANXIETY
     Dosage: UNK, AS NEEDED
     Route: 048
  6. LORAZEPAM [Concomitant]
     Indication: ANXIETY
     Dosage: UNK, AS NEEDED
     Route: 048

REACTIONS (1)
  - PULMONARY EMBOLISM [None]
